FAERS Safety Report 8324489-0 (Version None)
Quarter: 2012Q2

REPORT INFORMATION
  Report Type: 
  Country: None (occurrence: None)
  Receive Date: 20120501
  Receipt Date: 20120426
  Transmission Date: 20120825
  Serious: No
  Sender: FDA-Public Use
  Company Number: US-PFIZER INC-2012104080

PATIENT
  Sex: Female
  Weight: 86 kg

DRUGS (3)
  1. HYDROCODONE [Concomitant]
     Indication: SPINAL OSTEOARTHRITIS
     Dosage: UNK
  2. NEURONTIN [Suspect]
     Indication: NERVE COMPRESSION
  3. NEURONTIN [Suspect]
     Indication: SPINAL OSTEOARTHRITIS
     Dosage: 100 MG, 1X/DAY
     Route: 048
     Dates: start: 20120101, end: 20120401

REACTIONS (2)
  - DRUG INEFFECTIVE [None]
  - DIZZINESS [None]
